FAERS Safety Report 9254984 (Version 2)
Quarter: 2014Q1

REPORT INFORMATION
  Report Type: Spontaneous
  Country: US (occurrence: US)
  Receive Date: 20130425
  Receipt Date: 20140131
  Transmission Date: 20141002
  Serious: Yes (Hospitalization, Disabling, Other)
  Sender: FDA-Public Use
  Company Number: US-ASTRAZENECA-2013SE27448

PATIENT
  Age: 74 Year
  Sex: Female
  Weight: 62.6 kg

DRUGS (8)
  1. NEXIUM [Suspect]
     Indication: GASTROOESOPHAGEAL REFLUX DISEASE
     Route: 048
     Dates: start: 2005
  2. NEXIUM [Suspect]
     Indication: GASTROOESOPHAGEAL REFLUX DISEASE
     Route: 048
     Dates: start: 20080319
  3. PRILOSEC [Suspect]
     Route: 048
  4. PREVACID [Concomitant]
  5. LOSARTAN POTASSIUM [Concomitant]
     Indication: BLOOD PRESSURE ABNORMAL
  6. PREMARIN [Concomitant]
     Indication: HORMONE REPLACEMENT THERAPY
  7. GABAPENTIN [Concomitant]
     Indication: NERVE INJURY
  8. SIMVASTATIN [Concomitant]
     Indication: BLOOD CHOLESTEROL INCREASED

REACTIONS (10)
  - Wrist fracture [Unknown]
  - Upper limb fracture [Unknown]
  - Back disorder [Unknown]
  - Arthropathy [Unknown]
  - Fall [Unknown]
  - Abdominal pain upper [Unknown]
  - Osteoporosis [Unknown]
  - Bone disorder [Unknown]
  - Radius fracture [Unknown]
  - Ulna fracture [Unknown]
